FAERS Safety Report 7448623-X (Version None)
Quarter: 2011Q2

REPORT INFORMATION
  Report Type: 
  Country: None (occurrence: None)
  Receive Date: 20110429
  Receipt Date: 20101108
  Transmission Date: 20111010
  Serious: No
  Sender: FDA-Public Use
  Company Number: US-ASTRAZENECA-2010SE26310

PATIENT
  Sex: Female

DRUGS (3)
  1. ACCOLATE [Suspect]
     Route: 048
  2. NEXIUM [Suspect]
     Route: 048
  3. CRESTOR [Suspect]
     Route: 048

REACTIONS (9)
  - PAIN [None]
  - NERVE COMPRESSION [None]
  - BLADDER DISORDER [None]
  - BACK PAIN [None]
  - SPINAL DEFORMITY [None]
  - CHRONIC OBSTRUCTIVE PULMONARY DISEASE [None]
  - LOSS OF CONSCIOUSNESS [None]
  - DYSPNOEA [None]
  - FALL [None]
